FAERS Safety Report 9649053 (Version 2)
Quarter: 2013Q4

REPORT INFORMATION
  Report Type: Spontaneous
  Country: NL (occurrence: NL)
  Receive Date: 20131028
  Receipt Date: 20131106
  Transmission Date: 20140711
  Serious: Yes (Death)
  Sender: FDA-Public Use
  Company Number: NL-TEVA-438548ISR

PATIENT
  Age: 0 Day
  Sex: 0
  Weight: 1.15 kg

DRUGS (2)
  1. MAGNESIUMSULFAAT INJVLST 100MG/ML [Suspect]
     Indication: PREMATURE BABY
     Route: 064
     Dates: start: 20130906
  2. CELESTONE INJVLST 4MG/ML AMPUL 1ML [Concomitant]
     Indication: PREMATURE BABY
     Route: 064
     Dates: start: 20130906, end: 20130907

REACTIONS (3)
  - Condition aggravated [Fatal]
  - Foetal distress syndrome [Fatal]
  - Cerebral haemorrhage [Fatal]
